FAERS Safety Report 13585727 (Version 2)
Quarter: 2017Q3

REPORT INFORMATION
  Report Type: Spontaneous
  Country: JP (occurrence: JP)
  Receive Date: 20170526
  Receipt Date: 20170724
  Transmission Date: 20171127
  Serious: Yes (Hospitalization)
  Sender: FDA-Public Use
  Company Number: JP-ASTRAZENECA-2017SE55393

PATIENT
  Age: 75 Year
  Sex: Male

DRUGS (2)
  1. MEROPEN [Suspect]
     Active Substance: MEROPENEM
     Indication: PNEUMONIA
     Route: 041
  2. MEROPEN [Suspect]
     Active Substance: MEROPENEM
     Indication: BACTERAEMIA
     Route: 041

REACTIONS (2)
  - Loss of consciousness [Not Recovered/Not Resolved]
  - Hypoxia [Not Recovered/Not Resolved]
